FAERS Safety Report 15782330 (Version 3)
Quarter: 2019Q3

REPORT INFORMATION
  Report Type: Report from Study
  Country: CA (occurrence: CA)
  Receive Date: 20190102
  Receipt Date: 20190805
  Transmission Date: 20191004
  Serious: Yes (Hospitalization, Other)
  Sender: FDA-Public Use
  Company Number: CA-JNJFOC-20181233750

PATIENT
  Age: 64 Year
  Sex: Male
  Weight: 73 kg

DRUGS (3)
  1. REMICADE [Suspect]
     Active Substance: INFLIXIMAB
     Dosage: STRENGTH = 100 MG
     Route: 042
     Dates: start: 20161220
  2. REMICADE [Suspect]
     Active Substance: INFLIXIMAB
     Indication: COLITIS ULCERATIVE
     Route: 042
     Dates: start: 20160113
  3. AZATHIOPRINE. [Concomitant]
     Active Substance: AZATHIOPRINE
     Indication: IMMUNOSUPPRESSANT DRUG THERAPY
     Route: 048

REACTIONS (2)
  - Renal neoplasm [Recovering/Resolving]
  - Procedural pain [Recovered/Resolved]

NARRATIVE: CASE EVENT DATE: 201904
